FAERS Safety Report 7996867-0 (Version None)
Quarter: 2011Q4

REPORT INFORMATION
  Report Type: 
  Country: None (occurrence: None)
  Receive Date: 20111221
  Receipt Date: 20111212
  Transmission Date: 20120403
  Serious: Yes (Other)
  Sender: FDA-Public Use
  Company Number: BR-BRISTOL-MYERS SQUIBB COMPANY-16291809

PATIENT
  Age: 74 Year
  Sex: Female
  Weight: 59 kg

DRUGS (12)
  1. SIMVASTATIN [Concomitant]
     Indication: BLOOD CHOLESTEROL INCREASED
     Route: 048
  2. METFFORMIN HYDROCHLORIDE [Concomitant]
     Indication: DIABETES MELLITUS
     Dosage: 1DF= 2 TABS
     Route: 048
  3. NPH INSULIN [Concomitant]
     Indication: DIABETES MELLITUS
     Route: 058
  4. ATENOLOL [Concomitant]
     Indication: HYPERTENSION
     Route: 048
  5. HYDROCHLOROTHIAZIDE [Concomitant]
     Indication: HYPERTENSION
     Dosage: 1DF=1TAB
     Route: 048
  6. SYSTANE [Concomitant]
     Route: 047
  7. LEXOTAN [Concomitant]
     Indication: INSOMNIA
     Dosage: 1DF=1-2 TABS PRN
     Route: 048
  8. BEZAFIBRATE [Concomitant]
     Indication: BLOOD TRIGLYCERIDES INCREASED
     Dosage: TABS
     Route: 048
  9. DORFLEX [Concomitant]
     Indication: PAIN
     Dosage: 1DF=1TAB
     Route: 048
  10. ACETAMINOPHEN [Concomitant]
     Indication: PAIN
     Dosage: 1DF=1 TABS PRN
     Route: 048
  11. IRBESARTAN [Suspect]
     Indication: HYPERTENSION
     Route: 048
  12. TIMOLOL MALEATE [Concomitant]
     Indication: INTRAOCULAR PRESSURE DECREASED
     Route: 047

REACTIONS (2)
  - CATARACT [None]
  - CARPAL TUNNEL SYNDROME [None]
